FAERS Safety Report 8793718 (Version 1)
Quarter: 2012Q4

REPORT INFORMATION
  Report Type: 
  Country: PR (occurrence: PR)
  Receive Date: 20120918
  Receipt Date: 20120918
  Transmission Date: 20130627
  Serious: Yes (Other)
  Sender: FDA-Public Use
  Company Number: PR-ABBOTT-12P-131-0979324-00

PATIENT
  Age: 69 None
  Sex: Female
  Weight: 56.3 kg

DRUGS (5)
  1. HUMIRA [Suspect]
     Indication: CROHN^S DISEASE
     Route: 058
     Dates: start: 2008
  2. AZOFT [Concomitant]
     Indication: GLAUCOMA
     Dosage: each eye
     Route: 061
  3. XALANTAN [Concomitant]
     Indication: GLAUCOMA
     Dosage: each eye
     Route: 061
  4. ALPHAGAN [Concomitant]
     Indication: GLAUCOMA
     Dosage: each eye
     Route: 061
  5. NEXIUM [Concomitant]
     Indication: GASTRIC DISORDER
     Dosage: 1 capsule daily
     Route: 048

REACTIONS (6)
  - Bradycardia [Recovered/Resolved]
  - Flatulence [Recovering/Resolving]
  - Gastrointestinal pain [Recovering/Resolving]
  - Psoriasis [Not Recovered/Not Resolved]
  - Insomnia [Not Recovered/Not Resolved]
  - Onychomycosis [Not Recovered/Not Resolved]
